FAERS Safety Report 7138163-X (Version None)
Quarter: 2010Q4

REPORT INFORMATION
  Report Type: 
  Country: None (occurrence: None)
  Receive Date: 20101206
  Receipt Date: 20101129
  Transmission Date: 20110411
  Serious: Yes (Other)
  Sender: FDA-Public Use
  Company Number: FR-ASTRAZENECA-2010SE56630

PATIENT
  Age: 5 Year
  Sex: Male
  Weight: 15.7 kg

DRUGS (2)
  1. TENORMIN [Suspect]
     Indication: GLYCOGEN STORAGE DISEASE TYPE II
     Route: 048
     Dates: start: 20060101
  2. MYOZYME [Suspect]
     Indication: GLYCOGEN STORAGE DISEASE TYPE II
     Route: 042
     Dates: start: 20060101

REACTIONS (1)
  - PERICARDITIS [None]
